FAERS Safety Report 8401826-X (Version None)
Quarter: 2012Q2

REPORT INFORMATION
  Report Type: 
  Country: None (occurrence: None)
  Receive Date: 20120601
  Receipt Date: 20120530
  Transmission Date: 20120825
  Serious: Yes (Other)
  Sender: FDA-Public Use
  Company Number: FR-BAYER-2012-053623

PATIENT
  Age: 34 Year
  Sex: Female

DRUGS (2)
  1. VENLAFAXINE [Suspect]
     Dosage: 1 DF, QD
     Route: 048
  2. ESTRADIOL VALERATE/DIENOGEST [Suspect]
     Dosage: 1 DF, QD
     Route: 048

REACTIONS (1)
  - ABORTION INDUCED [None]
